FAERS Safety Report 9695906 (Version 2)
Quarter: 2013Q4

REPORT INFORMATION
  Report Type: Spontaneous
  Country: US (occurrence: US)
  Receive Date: 20131119
  Receipt Date: 20131125
  Transmission Date: 20140711
  Serious: Yes (Other)
  Sender: FDA-Public Use
  Company Number: US-BAYER-2013-137716

PATIENT
  Age: 30 Year
  Sex: Female
  Weight: 56.69 kg

DRUGS (1)
  1. MIRENA [Suspect]
     Indication: CONTRACEPTION
     Dosage: 20 MCG/24HR,CONT
     Route: 015
     Dates: start: 20090322, end: 20091030

REACTIONS (10)
  - Uterine perforation [None]
  - Pain [None]
  - Emotional distress [None]
  - Injury [None]
  - Fear [None]
  - Depression [None]
  - Anxiety [None]
  - Sleep disorder [None]
  - Device difficult to use [None]
  - Device failure [None]
